FAERS Safety Report 16966254 (Version 2)
Quarter: 2020Q4

REPORT INFORMATION
  Report Type: Report from Study
  Country: US (occurrence: US)
  Receive Date: 20191028
  Receipt Date: 20201012
  Transmission Date: 20210113
  Serious: Yes (Hospitalization)
  Sender: FDA-Public Use
  Company Number: US-EISAI MEDICAL RESEARCH-EC-2019-059224

PATIENT
  Age: 55 Year
  Sex: Male
  Weight: 80 kg

DRUGS (2)
  1. LENVIMA [Suspect]
     Active Substance: LENVATINIB
     Indication: RENAL CELL CARCINOMA
     Dosage: CYCLE OF 21 DAYS ON AND 7 DAYS OFF
     Route: 048
     Dates: start: 20190710, end: 2020
  2. LENVIMA [Suspect]
     Active Substance: LENVATINIB
     Dosage: CYCLE OF 21 DAYS ON AND 7 DAYS OFF (3 WEEKS ON, 1 WEEK OFF)
     Route: 048
     Dates: start: 20201007

REACTIONS (5)
  - Dehydration [Recovering/Resolving]
  - Fatigue [Recovering/Resolving]
  - Skin exfoliation [Recovered/Resolved]
  - Dry mouth [Not Recovered/Not Resolved]
  - Abdominal pain upper [Unknown]

NARRATIVE: CASE EVENT DATE: 20190711
